FAERS Safety Report 19330859 (Version 1)
Quarter: 2021Q2

REPORT INFORMATION
  Report Type: Spontaneous
  Country: GB (occurrence: GB)
  Receive Date: 20210528
  Receipt Date: 20210528
  Transmission Date: 20210717
  Serious: Yes (Hospitalization, Disabling, Other)
  Sender: FDA-Public Use
  Company Number: GB-ASTRAZENECA-2021A470671

PATIENT
  Age: 21 Year
  Sex: Female

DRUGS (9)
  1. OMEPRAZOLE. [Concomitant]
     Active Substance: OMEPRAZOLE
  2. LACTULOSE. [Concomitant]
     Active Substance: LACTULOSE
     Indication: CONSTIPATION
  3. QUETIAPINE. [Suspect]
     Active Substance: QUETIAPINE
     Indication: NEURALGIA
     Dosage: 75.0MG UNKNOWN
     Route: 048
     Dates: start: 20210326
  4. PARACETAMOL [Concomitant]
     Active Substance: ACETAMINOPHEN
     Indication: BACK PAIN
  5. CODEINE PHOSPHATE [Concomitant]
     Active Substance: CODEINE PHOSPHATE
  6. AMITRIPTYLINE [Concomitant]
     Active Substance: AMITRIPTYLINE
  7. FULTIUM?D3 [Concomitant]
     Active Substance: CHOLECALCIFEROL
     Indication: VITAMIN D DEFICIENCY
  8. SERTRALINE [Concomitant]
     Active Substance: SERTRALINE HYDROCHLORIDE
  9. PREGABALIN ZENTIVA [Concomitant]
     Active Substance: PREGABALIN
     Indication: NEURALGIA

REACTIONS (8)
  - Fibromyalgia [Unknown]
  - Muscle twitching [Unknown]
  - Fatigue [Unknown]
  - Dyspnoea [Unknown]
  - Adverse drug reaction [Not Recovered/Not Resolved]
  - Loss of consciousness [Unknown]
  - Amnesia [Recovered/Resolved with Sequelae]
  - Seizure [Not Recovered/Not Resolved]

NARRATIVE: CASE EVENT DATE: 20210401
